FAERS Safety Report 6329253-X (Version None)
Quarter: 2009Q3

REPORT INFORMATION
  Report Type: 
  Country: None (occurrence: None)
  Receive Date: 20090826
  Receipt Date: 20090820
  Transmission Date: 20100115
  Serious: Yes (Death, Other)
  Sender: FDA-Public Use
  Company Number: GB-CELGENEUS-167-21880-09061215

PATIENT
  Sex: Male
  Weight: 61 kg

DRUGS (20)
  1. REVLIMID [Suspect]
     Indication: MULTIPLE MYELOMA
     Route: 048
     Dates: start: 20090608, end: 20090615
  2. THALIDOMIDE [Concomitant]
     Route: 048
     Dates: start: 20090501, end: 20090601
  3. THALIDOMIDE [Concomitant]
     Route: 048
  4. DEXAMETHASONE [Concomitant]
     Route: 048
     Dates: start: 20090608
  5. CYCLOPHOSPHAMIDE [Concomitant]
     Indication: CHEMOTHERAPY
     Route: 048
     Dates: start: 20090601, end: 20090601
  6. CARBAMAZEPINE [Concomitant]
     Route: 048
     Dates: start: 20090501
  7. MST [Concomitant]
     Indication: PAIN
     Route: 048
     Dates: start: 20081201
  8. PARACETAMOL [Concomitant]
     Indication: PAIN
     Route: 048
     Dates: start: 20081201
  9. ORAMORPH SR [Concomitant]
     Indication: PAIN
     Dosage: 5-10MG
     Route: 048
     Dates: start: 20081201
  10. OMEPRAZOLE [Concomitant]
     Indication: GASTRIC DISORDER
     Route: 048
     Dates: start: 20090501
  11. HALOPERIDOL [Concomitant]
     Route: 048
     Dates: start: 20090608, end: 20090622
  12. COTRIM [Concomitant]
     Indication: ANTIFUNGAL PROPHYLAXIS
     Route: 048
     Dates: start: 20090501
  13. NIFEDIPINE [Concomitant]
     Route: 048
     Dates: start: 20090501
  14. ALLOPURINOL [Concomitant]
     Indication: PROPHYLAXIS
     Route: 048
     Dates: start: 20090501
  15. FLUCONAZOLE [Concomitant]
     Indication: ANTIFUNGAL PROPHYLAXIS
     Route: 048
     Dates: start: 20080501
  16. TINZAPARIN [Concomitant]
     Indication: ANTICOAGULANT THERAPY
     Route: 058
     Dates: start: 20081201
  17. VOLTAREN [Concomitant]
     Indication: PAIN
     Route: 048
     Dates: start: 20081201, end: 20090501
  18. ERYTHROMYCIN [Concomitant]
     Indication: ANTI-INFECTIVE THERAPY
     Route: 048
     Dates: start: 20090201, end: 20090201
  19. PAMIDRONATE DISODIUM [Concomitant]
     Route: 051
     Dates: start: 20080901
  20. VELCADE [Concomitant]
     Indication: MULTIPLE MYELOMA
     Route: 065
     Dates: start: 20090615

REACTIONS (2)
  - BLOOD BILIRUBIN INCREASED [None]
  - MULTIPLE MYELOMA [None]
